FAERS Safety Report 5481884-5 (Version None)
Quarter: 2007Q4

REPORT INFORMATION
  Report Type: 
  Country: None (occurrence: None)
  Receive Date: 20071005
  Receipt Date: 20070926
  Transmission Date: 20080405
  Serious: Yes (Other)
  Sender: FDA-Public Use
  Company Number: OSCN-PR-0709L-0374

PATIENT

DRUGS (1)
  1. OMNISCAN [Suspect]
     Indication: DRUG USE FOR UNKNOWN INDICATION
     Dosage: BETWEEN 15 AND 20 ML, SINGLE DOSE, I.V.
     Route: 042

REACTIONS (2)
  - BLOOD ALBUMIN INCREASED [None]
  - NEPHROGENIC SYSTEMIC FIBROSIS [None]
